FAERS Safety Report 18653875 (Version 3)
Quarter: 2021Q4

REPORT INFORMATION
  Report Type: Spontaneous
  Country: BR (occurrence: BR)
  Receive Date: 20201223
  Receipt Date: 20211122
  Transmission Date: 20220303
  Serious: Yes (Other)
  Sender: FDA-Public Use
  Company Number: BR-009507513-2012BRA009941

PATIENT
  Age: 69 Year
  Sex: Male
  Weight: 86 kg

DRUGS (6)
  1. JANUMET [Suspect]
     Active Substance: METFORMIN HYDROCHLORIDE\SITAGLIPTIN PHOSPHATE
     Dosage: 1 TABLET IN THE AFTERNOON AND 1 TABLET AT NIGHT
     Dates: start: 2008
  2. METOPROLOL TARTRATE [Concomitant]
     Active Substance: METOPROLOL TARTRATE
     Indication: Hypertension
     Dosage: TABLET IN THE MORNING
  3. OLMESARTAN MEDOXOMIL [Concomitant]
     Active Substance: OLMESARTAN MEDOXOMIL
     Indication: Hypertension
     Dosage: 1 TABLET IN THE MORNING
  4. INDAPAMIDE [Concomitant]
     Active Substance: INDAPAMIDE
     Indication: Cardiovascular disorder
     Dosage: 1 AFTERNOON TABLET
     Dates: start: 2008
  5. GLIMEPIRIDE [Concomitant]
     Active Substance: GLIMEPIRIDE
     Dosage: 1 TABLET DAILY
  6. GLICLAZIDE [Concomitant]
     Active Substance: GLICLAZIDE
     Dosage: 1 TABLET A DAY IN THE MORNING

REACTIONS (5)
  - Cataract [Not Recovered/Not Resolved]
  - Post procedural complication [Unknown]
  - Retinal disorder [Unknown]
  - Blood pressure increased [Unknown]
  - Blood glucose increased [Not Recovered/Not Resolved]
